FAERS Safety Report 13064664 (Version 1)
Quarter: 2016Q4

REPORT INFORMATION
  Report Type: Spontaneous
  Country: US (occurrence: US)
  Receive Date: 20161226
  Receipt Date: 20161226
  Transmission Date: 20170207
  Serious: Yes (Other)
  Sender: FDA-Public Use
  Company Number: None

PATIENT
  Age: 71 Year
  Sex: Male
  Weight: 64 kg

DRUGS (12)
  1. TICAGRELOR [Concomitant]
     Active Substance: TICAGRELOR
  2. DUONEB [Concomitant]
     Active Substance: ALBUTEROL SULFATE\IPRATROPIUM BROMIDE
  3. GUAIFENESIN. [Concomitant]
     Active Substance: GUAIFENESIN
  4. CANGRELOR [Suspect]
     Active Substance: CANGRELOR
     Indication: ANTIPLATELET THERAPY
     Dosage: ?          OTHER FREQUENCY:MCG/KG/MIN INFUSIO;?
     Route: 041
     Dates: start: 20160419, end: 20160427
  5. CANGRELOR [Suspect]
     Active Substance: CANGRELOR
     Indication: VASCULAR OPERATION
     Dosage: ?          OTHER FREQUENCY:MCG/KG/MIN INFUSIO;?
     Route: 041
     Dates: start: 20160419, end: 20160427
  6. LACTOBACILLUS [Concomitant]
     Active Substance: LACTOBACILLUS ACIDOPHILUS
  7. FAMOTIDINE. [Concomitant]
     Active Substance: FAMOTIDINE
  8. MAGNESIUM LACTATE [Concomitant]
     Active Substance: MAGNESIUM LACTATE
  9. ACETAMINOPHEN. [Concomitant]
     Active Substance: ACETAMINOPHEN
  10. ATORVASTATIN [Concomitant]
     Active Substance: ATORVASTATIN
  11. CYCLOBENZAPRINE [Concomitant]
     Active Substance: CYCLOBENZAPRINE
  12. METOPROLOL. [Concomitant]
     Active Substance: METOPROLOL

REACTIONS (7)
  - Chest pain [None]
  - Troponin increased [None]
  - Asthenia [None]
  - Hyperhidrosis [None]
  - Electrocardiogram ST segment abnormal [None]
  - Dyspnoea [None]
  - Atrioventricular block [None]

NARRATIVE: CASE EVENT DATE: 20160427
